FAERS Safety Report 18685846 (Version 1)
Quarter: 2020Q4

REPORT INFORMATION
  Report Type: Spontaneous
  Country: CH (occurrence: CH)
  Receive Date: 20201230
  Receipt Date: 20201230
  Transmission Date: 20210114
  Serious: Yes (Other)
  Sender: FDA-Public Use
  Company Number: CH-PURDUE-USA-2020-0194203

PATIENT
  Age: 67 Year
  Sex: Male

DRUGS (20)
  1. OXYNORM [Suspect]
     Active Substance: OXYCODONE HYDROCHLORIDE
     Dosage: 5 MG, TID (MAX, AS NEEDED)
     Route: 048
     Dates: start: 20200724
  2. TARGIN [Suspect]
     Active Substance: NALOXONE HYDROCHLORIDE\OXYCODONE HYDROCHLORIDE
     Dosage: 20 MG, Q12H (DELAYED TABLET)
     Route: 048
     Dates: start: 20201116, end: 20201201
  3. PREGABALINE [Suspect]
     Active Substance: PREGABALIN
     Indication: PRODUCT USED FOR UNKNOWN INDICATION
     Dosage: 50 MG, TID
     Route: 048
     Dates: start: 20200610
  4. CEFEPIME [Concomitant]
     Active Substance: CEFEPIME HYDROCHLORIDE
     Dosage: UNK
  5. OXYNORM [Suspect]
     Active Substance: OXYCODONE HYDROCHLORIDE
     Indication: PRODUCT USED FOR UNKNOWN INDICATION
     Dosage: 5 MG, TID
     Route: 048
     Dates: start: 20201208
  6. BELOC ZOK [Concomitant]
     Active Substance: METOPROLOL SUCCINATE
     Dosage: UNK
  7. PREDNISONE. [Concomitant]
     Active Substance: PREDNISONE
     Indication: MONONEURITIS
     Dosage: 100 MG, DAILY
     Route: 048
     Dates: start: 20200724
  8. TARGIN [Suspect]
     Active Substance: NALOXONE HYDROCHLORIDE\OXYCODONE HYDROCHLORIDE
     Dosage: 25 MG, Q12H (DELAYED TABLET)
     Route: 048
     Dates: start: 20201201, end: 20201207
  9. XARELTO [Concomitant]
     Active Substance: RIVAROXABAN
     Dosage: UNK
     Dates: start: 20201202
  10. TORASEMIDE [Concomitant]
     Active Substance: TORSEMIDE
     Dosage: UNK
  11. INSULATARD                         /00646002/ [Concomitant]
     Active Substance: INSULIN HUMAN
     Dosage: UNK
  12. FOLIC ACID. [Concomitant]
     Active Substance: FOLIC ACID
     Dosage: UNK
  13. VALTREX [Concomitant]
     Active Substance: VALACYCLOVIR HYDROCHLORIDE
     Dosage: UNK
  14. WELLVONE [Concomitant]
     Active Substance: ATOVAQUONE
     Dosage: UNK
  15. IPRAMOL [Concomitant]
     Active Substance: ALBUTEROL SULFATE\IPRATROPIUM BROMIDE
     Dosage: UNK
     Route: 055
  16. NEXIUM MUPS                        /01479302/ [Concomitant]
     Active Substance: ESOMEPRAZOLE MAGNESIUM
     Dosage: UNK
  17. OXYNORM [Suspect]
     Active Substance: OXYCODONE HYDROCHLORIDE
     Dosage: 10 MG, TID (AS NEEDED)
     Route: 048
     Dates: start: 20201201, end: 20201208
  18. TARGIN [Suspect]
     Active Substance: NALOXONE HYDROCHLORIDE\OXYCODONE HYDROCHLORIDE
     Indication: PRODUCT USED FOR UNKNOWN INDICATION
     Dosage: 20 MG, Q12H (DELAYED TABLET)
     Route: 048
     Dates: start: 20201207
  19. NOVORAPID [Concomitant]
     Active Substance: INSULIN ASPART
     Dosage: UNK
  20. ELECTROLYTES NOS W/MACROGOL [Concomitant]
     Dosage: UNK

REACTIONS (1)
  - Myoclonus [Not Recovered/Not Resolved]

NARRATIVE: CASE EVENT DATE: 202011
